FAERS Safety Report 23892229 (Version 1)
Quarter: 2024Q2

REPORT INFORMATION
  Report Type: Other
  Country: US (occurrence: None)
  Receive Date: 20240524
  Receipt Date: 20240524
  Transmission Date: 20240715
  Serious: No
  Sender: FDA-Public Use
  Company Number: US-ROCHE-3347563

PATIENT
  Age: 56 Year
  Sex: Male

DRUGS (14)
  1. TOCILIZUMAB [Suspect]
     Active Substance: TOCILIZUMAB
     Indication: COVID-19 pneumonia
     Route: 065
  2. DEXAMETHASONE [Concomitant]
     Active Substance: DEXAMETHASONE
     Indication: COVID-19 pneumonia
  3. REMDESIVIR [Concomitant]
     Active Substance: REMDESIVIR
     Indication: COVID-19 pneumonia
  4. CEFTRIAXONE [Concomitant]
     Active Substance: CEFTRIAXONE\CEFTRIAXONE SODIUM
     Indication: Pneumonia
  5. AZITHROMYCIN [Concomitant]
     Active Substance: AZITHROMYCIN
     Indication: Pneumonia
  6. VASOPRESSIN [Concomitant]
     Active Substance: VASOPRESSIN
  7. PHENYLEPHRINE [Concomitant]
     Active Substance: PHENYLEPHRINE HYDROCHLORIDE
  8. EPINEPHRINE [Concomitant]
     Active Substance: EPINEPHRINE
  9. VANCOMYCIN [Concomitant]
     Active Substance: VANCOMYCIN
  10. CEFEPIME [Concomitant]
     Active Substance: CEFEPIME HYDROCHLORIDE
  11. ANIDULAFUNGIN [Concomitant]
     Active Substance: ANIDULAFUNGIN
  12. DAPTOMYCIN [Concomitant]
     Active Substance: DAPTOMYCIN
  13. MEROPENEM [Concomitant]
     Active Substance: MEROPENEM
  14. GENTAMICIN [Concomitant]
     Active Substance: GENTAMICIN

REACTIONS (2)
  - Off label use [Unknown]
  - No adverse event [Unknown]
